FAERS Safety Report 7411839-2 (Version None)
Quarter: 2011Q2

REPORT INFORMATION
  Report Type: 
  Country: None (occurrence: None)
  Receive Date: 20110413
  Receipt Date: 20110331
  Transmission Date: 20111010
  Serious: Yes (Death, Hospitalization, Other)
  Sender: FDA-Public Use
  Company Number: FR-GENZYME-CAMP-1001141

PATIENT
  Sex: Male
  Weight: 39 kg

DRUGS (15)
  1. ATENOLOL [Concomitant]
     Indication: HYPERTENSION
     Dosage: 100 MG, QD
     Route: 048
  2. ENALAPRIL MALEATE [Concomitant]
     Indication: HYPERTENSION
     Dosage: 20/12.5 MG QD
     Route: 048
  3. PEGFILGRASTIM [Suspect]
     Dosage: UNK
     Dates: start: 20101019
  4. KARDEGIC [Concomitant]
     Indication: PRODUCT USED FOR UNKNOWN INDICATION
     Dosage: 160 MG, QD
     Route: 048
  5. LEDERFOLIN [Concomitant]
     Indication: PRODUCT USED FOR UNKNOWN INDICATION
     Dosage: 15 MG
     Route: 065
  6. DEXAMETHASONE [Suspect]
     Indication: CHRONIC LYMPHOCYTIC LEUKAEMIA
     Dosage: 40 MG, QD X 4 DAYS
     Route: 048
     Dates: start: 20100922
  7. NEULASTA [Suspect]
     Indication: CHRONIC LYMPHOCYTIC LEUKAEMIA
     Dosage: UNK
     Route: 058
     Dates: start: 20101009
  8. CRESTOR [Concomitant]
     Indication: PRODUCT USED FOR UNKNOWN INDICATION
     Dosage: 5 MG, QD
     Route: 048
  9. NEODEX [Suspect]
     Indication: CHRONIC LYMPHOCYTIC LEUKAEMIA
     Dosage: 40 MG FROM D1 TO D4 AND D15 TO D18 ORALLY FOR ALL CYCLES
     Route: 048
  10. CAMPATH [Suspect]
     Dosage: 30 MG, 3X/W
     Route: 058
     Dates: start: 20101018, end: 20101105
  11. NEULASTA [Suspect]
     Dosage: UNK
     Route: 058
     Dates: start: 20101019
  12. ZELITREX [Concomitant]
     Indication: PRODUCT USED FOR UNKNOWN INDICATION
     Dosage: UNK
     Route: 048
  13. CAMPATH [Suspect]
     Indication: CHRONIC LYMPHOCYTIC LEUKAEMIA
     Dosage: 30 MG, QD, 3X/W FOR 4 WEEKS
     Route: 058
     Dates: start: 20100922
  14. DEXAMETHASONE [Suspect]
     Dosage: 40 MG, QD X 4 DAYS
     Route: 048
     Dates: start: 20101018, end: 20101104
  15. PEGFILGRASTIM [Suspect]
     Indication: NEUTROPENIA
     Dosage: UNK
     Route: 058
     Dates: start: 20101109

REACTIONS (1)
  - LUNG DISORDER [None]
